FAERS Safety Report 9216544 (Version 2)
Quarter: 2013Q3

REPORT INFORMATION
  Report Type: Spontaneous
  Country: US (occurrence: US)
  Receive Date: 20130408
  Receipt Date: 20130815
  Transmission Date: 20140515
  Serious: Yes (Other)
  Sender: FDA-Public Use
  Company Number: US-BAYER-2013-038374

PATIENT
  Age: 30 Year
  Sex: Female

DRUGS (1)
  1. MIRENA [Suspect]
     Indication: CONTRACEPTION
     Dosage: 20 MCG/24HR, CONT
     Route: 015
     Dates: start: 20130128, end: 20130311

REACTIONS (15)
  - Abdominal distension [Recovered/Resolved]
  - Weight increased [None]
  - Abdominal pain [None]
  - Mood swings [None]
  - Anger [None]
  - Anxiety [None]
  - Irritability [None]
  - Disturbance in attention [None]
  - Acne [None]
  - Medical device discomfort [None]
  - Emotional distress [None]
  - Genital haemorrhage [Recovered/Resolved]
  - Crying [None]
  - Fatigue [Recovered/Resolved]
  - Blood pressure increased [Recovered/Resolved]
